FAERS Safety Report 6855921-7 (Version None)
Quarter: 2010Q3

REPORT INFORMATION
  Report Type: 
  Country: None (occurrence: None)
  Receive Date: 20100716
  Receipt Date: 20100716
  Transmission Date: 20110219
  Serious: Yes (Life-Threatening, Hospitalization)
  Sender: FDA-Public Use
  Company Number: None

PATIENT
  Age: 75 Year
  Sex: Female
  Weight: 53.978 kg

DRUGS (2)
  1. ZOVIRAX [Suspect]
     Indication: VIITH NERVE PARALYSIS
     Dosage: 800 MG 5X DAILY 9 DAYS
     Dates: start: 20100113
  2. NORVASC [Suspect]
     Dosage: 2.5 MG 1 DAILY 30 DAYS
     Dates: start: 20100220

REACTIONS (6)
  - CARDIAC FIBRILLATION [None]
  - CHILLS [None]
  - CHROMATURIA [None]
  - DRUG HYPERSENSITIVITY [None]
  - NAUSEA [None]
  - YELLOW SKIN [None]
